FAERS Safety Report 25174350 (Version 1)
Quarter: 2025Q2

REPORT INFORMATION
  Report Type: Spontaneous
  Country: ES (occurrence: ES)
  Receive Date: 20250408
  Receipt Date: 20250408
  Transmission Date: 20250716
  Serious: Yes (Disabling)
  Sender: UCB
  Company Number: ES-IQFVIRFV-8804

PATIENT
  Age: 46 Year
  Sex: Male

DRUGS (16)
  1. LEVETIRACETAM [Suspect]
     Active Substance: LEVETIRACETAM
     Indication: Prophylaxis
     Dosage: 500 MILLIGRAM, 2X/DAY (BID)
  2. LEVETIRACETAM [Suspect]
     Active Substance: LEVETIRACETAM
     Indication: Off label use
  3. VERAPAMIL [Suspect]
     Active Substance: VERAPAMIL HYDROCHLORIDE
     Indication: Prophylaxis
  4. IBUPROFEN [Suspect]
     Active Substance: IBUPROFEN
     Indication: Pain in extremity
     Dosage: 600 MILLIGRAM, 3X/DAY (TID)
  5. ACETAMINOPHEN [Suspect]
     Active Substance: ACETAMINOPHEN
     Indication: Pain in extremity
     Dosage: 1 GRAM, 3X/DAY (TID)
  6. DULOXETINE [Suspect]
     Active Substance: DULOXETINE
     Indication: Pain in extremity
     Dosage: 60 MILLIGRAM, DAILY
  7. PREGABALIN [Suspect]
     Active Substance: PREGABALIN
     Indication: Pain in extremity
     Dosage: PREGABALIN 150MG/12H.
  8. MELOXICAM [Suspect]
     Active Substance: MELOXICAM
     Indication: Pain in extremity
  9. FENTANYL [Suspect]
     Active Substance: FENTANYL
     Indication: Pain in extremity
     Dosage: 50 MICROGRAM, EV 3 DAYS
  10. OXYCODONE [Suspect]
     Active Substance: OXYCODONE
     Indication: Pain in extremity
     Dosage: 10 MILLIGRAM, 4X/DAY (QID)
  11. LIDOCAINE [Suspect]
     Active Substance: LIDOCAINE
     Indication: Pain in extremity
  12. BUTALBITAL [Suspect]
     Active Substance: BUTALBITAL
     Indication: Migraine
  13. CAFFEINE [Suspect]
     Active Substance: CAFFEINE
     Indication: Migraine
  14. BOTULINUM TOXIN TYPE A [Suspect]
     Active Substance: BOTULINUM TOXIN TYPE A
     Indication: Migraine
  15. VITAMIN B1 [Suspect]
     Active Substance: THIAMINE HYDROCHLORIDE
     Indication: Pain in extremity
  16. ZICONOTIDE [Concomitant]
     Active Substance: ZICONOTIDE
     Indication: Complex regional pain syndrome
     Dosage: 0.5 MICROGRAM, ONCE DAILY (QD)
     Route: 037

REACTIONS (4)
  - Anxiety [Unknown]
  - Depressive symptom [Unknown]
  - Drug ineffective for unapproved indication [Unknown]
  - Off label use [Unknown]
